FAERS Safety Report 5494436-8 (Version None)
Quarter: 2007Q4

REPORT INFORMATION
  Report Type: 
  Country: None (occurrence: None)
  Receive Date: 20071024
  Receipt Date: 20071017
  Transmission Date: 20080405
  Serious: Yes (Death, Other)
  Sender: FDA-Public Use
  Company Number: US-BAYER-200713375BCC

PATIENT
  Sex: Male

DRUGS (1)
  1. ALKA SELTZER PLUS [Suspect]
     Indication: ROUTINE HEALTH MAINTENANCE
     Route: 048

REACTIONS (6)
  - ASTROCYTOMA [None]
  - DEATH [None]
  - DIZZINESS [None]
  - DYSSTASIA [None]
  - GAIT DISTURBANCE [None]
  - GLIOMA [None]
